FAERS Safety Report 9483207 (Version 2)
Quarter: 2013Q3

REPORT INFORMATION
  Report Type: Spontaneous
  Country: US (occurrence: US)
  Receive Date: 20130828
  Receipt Date: 20130828
  Transmission Date: 20140515
  Serious: Yes (Hospitalization, Other)
  Sender: FDA-Public Use
  Company Number: US-AMGEN-US127883

PATIENT
  Age: 70 Year
  Sex: Female

DRUGS (4)
  1. ENBREL [Suspect]
     Indication: RHEUMATOID ARTHRITIS
     Dosage: 25 MG, 2 TIMES/WK
     Route: 058
     Dates: start: 19990101
  2. CENTRUM SILVER [Concomitant]
     Dosage: UNK UNK, QD
  3. PROCRIT [Concomitant]
  4. ARANESP [Concomitant]
     Dosage: UNK UNK, Q2WK

REACTIONS (8)
  - Myelodysplastic syndrome [Unknown]
  - Thrombocytopenia [Unknown]
  - Pneumonia [Unknown]
  - Pulmonary mass [Unknown]
  - Nasopharyngitis [Unknown]
  - Skin cancer [Unknown]
  - Abdominal hernia [Unknown]
  - Purulent pericarditis [Unknown]
